FAERS Safety Report 16009631 (Version 1)
Quarter: 2019Q1

REPORT INFORMATION
  Report Type: Spontaneous
  Country: FR (occurrence: FR)
  Receive Date: 20190226
  Receipt Date: 20190226
  Transmission Date: 20190418
  Serious: Yes (Hospitalization)
  Sender: FDA-Public Use
  Company Number: FR-TEVA-2019-FR-1016138

PATIENT
  Age: 83 Year
  Sex: Female
  Weight: 46 kg

DRUGS (13)
  1. URBANYL [Concomitant]
     Active Substance: CLOBAZAM
  2. FLECAINE [Concomitant]
     Active Substance: FLECAINIDE
  3. DOLIPRANE [Suspect]
     Active Substance: ACETAMINOPHEN
     Indication: INFLUENZA
     Dosage: 3 GRAM DAILY;
     Route: 048
     Dates: start: 20190119
  4. AMLODIPINE [Concomitant]
     Active Substance: AMLODIPINE BESYLATE
  5. ESIDREX [Concomitant]
     Active Substance: HYDROCHLOROTHIAZIDE
  6. GAVISCON [Concomitant]
     Active Substance: ALUMINUM HYDROXIDE\MAGNESIUM CARBONATE
  7. TERBUTALINE (SULFATE DE) [Suspect]
     Active Substance: TERBUTALINE SULFATE
     Indication: RESPIRATORY SYMPTOM
     Dosage: 1 DOSAGE FORMS DAILY;
     Route: 055
     Dates: start: 20190119
  8. TEMESTA [LORAZEPAM] [Concomitant]
     Active Substance: LORAZEPAM
  9. TAMIFLU [Suspect]
     Active Substance: OSELTAMIVIR PHOSPHATE
     Indication: INFLUENZA
     Dosage: 2 DOSAGE FORMS DAILY;
     Route: 048
     Dates: start: 20190118, end: 20190121
  10. LOSARTAN POTASSIQUE [Concomitant]
     Active Substance: LOSARTAN POTASSIUM
  11. IPRATROPIUM (BROMURE D^) [Suspect]
     Active Substance: IPRATROPIUM
     Indication: RESPIRATORY SYMPTOM
     Dosage: 1 DOSAGE FORMS DAILY;
     Route: 055
     Dates: start: 20190119
  12. ESOMEPRAZOLE. [Concomitant]
     Active Substance: ESOMEPRAZOLE MAGNESIUM
  13. PAROXETINE (CHLORHYDRATE DE) ANHYDRE [Concomitant]
     Active Substance: PAROXETINE

REACTIONS (3)
  - Hallucination [Not Recovered/Not Resolved]
  - Confusional state [Not Recovered/Not Resolved]
  - Abnormal behaviour [Not Recovered/Not Resolved]

NARRATIVE: CASE EVENT DATE: 20190119
